FAERS Safety Report 11303860 (Version 1)
Quarter: 2015Q3

REPORT INFORMATION
  Report Type: Spontaneous
  Country: US (occurrence: US)
  Receive Date: 20150723
  Receipt Date: 20150723
  Transmission Date: 20151125
  Serious: No
  Sender: FDA-Public Use
  Company Number: US-JNJFOC-20150405655

PATIENT
  Age: 69 Year
  Sex: Female
  Weight: 68.04 kg

DRUGS (5)
  1. ZYRTEC [Suspect]
     Active Substance: CETIRIZINE HYDROCHLORIDE
     Indication: MULTIPLE ALLERGIES
     Route: 048
     Dates: end: 20150404
  2. MATZIM LA [Concomitant]
     Active Substance: DILTIAZEM HYDROCHLORIDE
     Indication: HYPERTENSION
     Dosage: INTERVAL: NOV-2014
     Route: 065
     Dates: start: 201411
  3. ZYRTEC [Suspect]
     Active Substance: CETIRIZINE HYDROCHLORIDE
     Route: 048
  4. VOLTAREN [Concomitant]
     Active Substance: DICLOFENAC SODIUM
     Indication: ARTHRITIS
     Dosage: INTERVAL: AUG-2014
     Route: 065
     Dates: start: 20140827
  5. ATIVAN [Concomitant]
     Active Substance: LORAZEPAM
     Indication: PRODUCT USED FOR UNKNOWN INDICATION
     Dosage: ONE-HALF OF 1 MG DAILY
     Route: 065

REACTIONS (6)
  - Blood pressure increased [Unknown]
  - Off label use [Unknown]
  - Self-medication [Unknown]
  - Gait disturbance [Recovering/Resolving]
  - Movement disorder [Recovering/Resolving]
  - Wrong patient received medication [Unknown]

NARRATIVE: CASE EVENT DATE: 20150403
